FAERS Safety Report 15575788 (Version 1)
Quarter: 2018Q4

REPORT INFORMATION
  Report Type: Report from Study
  Country: DE (occurrence: DE)
  Receive Date: 20181101
  Receipt Date: 20181101
  Transmission Date: 20190205
  Serious: Yes (Death, Hospitalization, Other)
  Sender: FDA-Public Use
  Company Number: DE-TEVA-2018-DE-971623

PATIENT
  Age: 69 Year
  Sex: Male
  Weight: 66 kg

DRUGS (10)
  1. POMALIDOMID [Suspect]
     Active Substance: POMALIDOMIDE
     Route: 048
     Dates: end: 20140730
  2. SOLU DECORTIN H [Concomitant]
     Active Substance: PREDNISOLONE SODIUM SUCCINATE
     Indication: PROPHYLAXIS
     Route: 041
     Dates: start: 20140509, end: 20140924
  3. AMLODIPIN [Concomitant]
     Active Substance: AMLODIPINE BESYLATE
     Indication: HYPERTENSION
     Dosage: 5 MILLIGRAM DAILY; DAILY DOSE: 5 MG MILLIGRAM(S) EVERY DAY
     Route: 048
     Dates: start: 201407, end: 20140924
  4. DEXAMETHASON [Suspect]
     Active Substance: DEXAMETHASONE
     Dates: start: 20140506, end: 20140520
  5. PANTOZOL [Concomitant]
     Active Substance: PANTOPRAZOLE SODIUM
     Dosage: 20 MILLIGRAM DAILY; DAILY DOSE: 20 MG MILLIGRAM(S) EVERY DAY
     Route: 048
     Dates: start: 2006, end: 20140924
  6. POMALIDOMID [Suspect]
     Active Substance: POMALIDOMIDE
     Route: 048
     Dates: end: 20140825
  7. CANDESARTAN. [Concomitant]
     Active Substance: CANDESARTAN
     Indication: HYPERTENSION
     Dosage: 4 MILLIGRAM DAILY; DAILY DOSE: 8 MG MILLIGRAM(S) EVERY DAY
     Route: 048
     Dates: start: 201307, end: 20140924
  8. METOPROLOL. [Concomitant]
     Active Substance: METOPROLOL
     Indication: HYPERTENSION
     Dosage: 50 MILLIGRAM DAILY; DAILY DOSE: 100 MG MILLIGRAM(S) EVERY DAY
     Route: 048
     Dates: start: 201208, end: 20140924
  9. POMALIDOMID [Suspect]
     Active Substance: POMALIDOMIDE
     Indication: PLASMA CELL MYELOMA
     Route: 048
     Dates: start: 20140505, end: 20140519
  10. DEXAMETHASON [Suspect]
     Active Substance: DEXAMETHASONE
     Indication: PLASMA CELL MYELOMA
     Dosage: 13.5 GRAM
     Route: 065
     Dates: start: 20140719, end: 20140809

REACTIONS (4)
  - Thrombocytopenia [Not Recovered/Not Resolved]
  - Haemophilus sepsis [Recovered/Resolved]
  - Thrombocytopenia [Recovered/Resolved]
  - Plasma cell myeloma [Fatal]

NARRATIVE: CASE EVENT DATE: 20140519
